FAERS Safety Report 4523894-8 (Version None)
Quarter: 2004Q4

REPORT INFORMATION
  Report Type: 
  Country: None (occurrence: None)
  Receive Date: 20041116
  Receipt Date: 20040823
  Transmission Date: 20050328
  Serious: No
  Sender: FDA-Public Use
  Company Number: S04-USA-05760-01

PATIENT
  Age: 87 Year
  Sex: Female

DRUGS (10)
  1. NAMENDA [Suspect]
     Indication: DEMENTIA ALZHEIMER'S TYPE
     Dosage: 5 MG QD PO
     Route: 048
     Dates: start: 20040807, end: 20040813
  2. NAMENDA [Suspect]
     Indication: DEMENTIA ALZHEIMER'S TYPE
     Dosage: 10 MG QD PO
     Route: 048
     Dates: start: 20040814, end: 20040820
  3. ARICEPT 9DONEPEZIL HYDROCHLORIDE) [Concomitant]
  4. RISPERDAL [Concomitant]
  5. HYDROCHLOROTHIAZIDE [Concomitant]
  6. PROTONIX ^PHARMAICA^ (PANTOPRAZOLE) [Concomitant]
  7. MULTIVITAMIN [Concomitant]
  8. ASPIRIN ^BAYER^ (ACETYLSALICYLIC ACID0 [Concomitant]
  9. CALCIUM [Concomitant]
  10. FIBERCON (POLYCARBOPHIL CALCIUM) [Concomitant]

REACTIONS (2)
  - CONFUSIONAL STATE [None]
  - FATIGUE [None]
